FAERS Safety Report 8895649 (Version 2)
Quarter: 2012Q4

REPORT INFORMATION
  Report Type: 
  Country: DE (occurrence: DE)
  Receive Date: 20121107
  Receipt Date: 20121228
  Transmission Date: 20130627
  Serious: No
  Sender: FDA-Public Use
  Company Number: DE-WATSON-2012-18505

PATIENT
  Sex: Male

DRUGS (4)
  1. RAPAFLO (WATSON LABORATORIES) [Suspect]
     Indication: LOWER URINARY TRACT SYMPTOMS
     Dosage: 8 mg, daily
     Route: 048
     Dates: start: 20120618, end: 201209
  2. RAPAFLO (WATSON LABORATORIES) [Suspect]
     Indication: BENIGN PROSTATIC HYPERPLASIA
  3. UROREC [Concomitant]
     Indication: PRODUCT USED FOR UNKNOWN INDICATION
     Dosage: 4 mg hard capsule, UNK
     Route: 065
     Dates: start: 20120619
  4. FINASTERID [Concomitant]
     Indication: PRODUCT USED FOR UNKNOWN INDICATION
     Dosage: UNK
     Route: 065
     Dates: start: 2009

REACTIONS (4)
  - Orthostatic intolerance [Unknown]
  - Syncope [Unknown]
  - Exercise tolerance decreased [Unknown]
  - Malaise [Unknown]
